FAERS Safety Report 8871537 (Version 1)
Quarter: 2012Q4

REPORT INFORMATION
  Report Type: 
  Country: US (occurrence: US)
  Receive Date: 20121026
  Receipt Date: 20121026
  Transmission Date: 20130627
  Serious: No
  Sender: FDA-Public Use
  Company Number: US-AMGEN-USASP2012048419

PATIENT
  Age: 65 Year
  Sex: Female
  Weight: 77.1 kg

DRUGS (18)
  1. ENBREL [Suspect]
     Indication: PRODUCT USED FOR UNKNOWN INDICATION
     Dosage: 50 mg, qwk
     Route: 058
  2. METHOTREXATE [Concomitant]
     Dosage: 2.5 mg, UNK
  3. PREDNISONE [Concomitant]
     Dosage: 5 mg, UNK
  4. ACETAMINOPHEN [Concomitant]
     Dosage: 500 mg, UNK
  5. DIPHENHYDRAMINE [Concomitant]
     Dosage: 25 mg, UNK
  6. KELP                               /01214901/ [Concomitant]
     Dosage: UNK
  7. NIACIN [Concomitant]
     Dosage: 125 mg, UNK
  8. COQ10                              /00517201/ [Concomitant]
  9. CALCIUM [Concomitant]
     Dosage: 500 UNK, UNK
  10. BIOTIN [Concomitant]
     Dosage: 5000 UNK, UNK
  11. VITAMIN C                          /00008001/ [Concomitant]
     Dosage: 500 mg, UNK
  12. ALFALFA                            /01255601/ [Concomitant]
     Dosage: 250 mg, UNK
  13. MULTIVITAMINS [Concomitant]
     Dosage: UNK
  14. FOLIC ACID [Concomitant]
     Dosage: UNK
  15. NAPROXEN SOD [Concomitant]
     Dosage: 220 mg, UNK
  16. LEUCOVORIN /00566701/ [Concomitant]
     Dosage: UNK
  17. CALCIUM D3                         /00944201/ [Concomitant]
     Dosage: 10000 IU, UNK
  18. PSEUDOPHED [Concomitant]
     Dosage: UNK

REACTIONS (4)
  - Pain [Not Recovered/Not Resolved]
  - Lacrimation increased [Not Recovered/Not Resolved]
  - Rhinorrhoea [Not Recovered/Not Resolved]
  - Feeling abnormal [Not Recovered/Not Resolved]
